FAERS Safety Report 6061870-7 (Version None)
Quarter: 2009Q1

REPORT INFORMATION
  Report Type: 
  Country: None (occurrence: None)
  Receive Date: 20090202
  Receipt Date: 20090120
  Transmission Date: 20090719
  Serious: Yes (Other)
  Sender: FDA-Public Use
  Company Number: PHHY2009BR02519

PATIENT
  Age: 60 Year
  Sex: Female
  Weight: 52 kg

DRUGS (5)
  1. DIOVAN AMLO FIX [Suspect]
     Indication: HYPERTENSION
     Dosage: (80/5 MG)1 TABLET/DAY
     Route: 048
     Dates: start: 20080901
  2. DIOVAN AMLO FIX [Suspect]
     Dosage: (160/5 MG)1/2 TAB DAILY
     Route: 048
     Dates: start: 20081201
  3. PURAN T4 [Concomitant]
     Indication: HYPOTHYROIDISM
     Dosage: 1 TABLET/DAY
     Route: 048
     Dates: start: 20080101
  4. TIBOLONE [Concomitant]
     Indication: HORMONE THERAPY
     Dosage: 1 TABLET/DAY
     Route: 048
     Dates: start: 20081201
  5. SIMVASTATIN [Concomitant]
     Indication: BLOOD CHOLESTEROL
     Dosage: 1 TABLET/DAY
     Route: 048
     Dates: start: 20010101

REACTIONS (12)
  - ARTHRALGIA [None]
  - BACK PAIN [None]
  - DYSSTASIA [None]
  - FATIGUE [None]
  - FIBROMYALGIA [None]
  - HAEMATOMA [None]
  - INFECTION [None]
  - JOINT SWELLING [None]
  - MYALGIA [None]
  - OSTEOPENIA [None]
  - PAIN IN EXTREMITY [None]
  - RED BLOOD CELL SEDIMENTATION RATE INCREASED [None]
